FAERS Safety Report 18599361 (Version 1)
Quarter: 2020Q4

REPORT INFORMATION
  Report Type: Report from Study
  Country: RO (occurrence: RO)
  Receive Date: 20201210
  Receipt Date: 20201210
  Transmission Date: 20210114
  Serious: Yes (Other)
  Sender: FDA-Public Use
  Company Number: RO-ALS-000134

PATIENT

DRUGS (1)
  1. METFORMIN [Suspect]
     Active Substance: METFORMIN HYDROCHLORIDE
     Indication: CONGENITAL CYSTIC KIDNEY DISEASE
     Dosage: INITIAL DOSE OF 500 MG/DAY (FIRST MONTH), THEN INCREASED TO 1000 MG/DAY (500 MG TWICE DAILY)
     Route: 065

REACTIONS (2)
  - Renal cyst infection [Unknown]
  - Off label use [Unknown]
